FAERS Safety Report 7349986-6 (Version None)
Quarter: 2011Q1

REPORT INFORMATION
  Report Type: 
  Country: None (occurrence: None)
  Receive Date: 20110314
  Receipt Date: 20110218
  Transmission Date: 20110831
  Serious: Yes (Death, Other)
  Sender: FDA-Public Use
  Company Number: US-BAYER-200940272NA

PATIENT
  Sex: Male
  Weight: 87 kg

DRUGS (11)
  1. FORANE [Concomitant]
     Dosage: UNK
     Dates: start: 20040630, end: 20040630
  2. FENTANYL [Concomitant]
     Dosage: UNK
     Route: 042
     Dates: start: 20040630, end: 20040630
  3. PAVULON [Concomitant]
     Dosage: 15 MG, UNK
     Route: 042
     Dates: start: 20040630, end: 20040630
  4. VANCOMYCIN [Concomitant]
     Dosage: 1 G, UNK
     Route: 042
     Dates: start: 20040630, end: 20040630
  5. TRASYLOL [Suspect]
     Indication: CORONARY ARTERY BYPASS
     Dosage: 25 ML, Q1HR
     Route: 042
     Dates: start: 20040630, end: 20040630
  6. VERSED [Concomitant]
     Dosage: 5 MG, UNK
     Route: 042
     Dates: start: 20040630, end: 20040630
  7. PLASMA [Concomitant]
     Dosage: 969 ML, UNK
     Dates: start: 20040630
  8. PLATELETS [Concomitant]
     Dosage: 242 ML, UNK
     Dates: start: 20040630
  9. LEVAQUIN [Concomitant]
     Dosage: 500 MG, UNK
     Route: 042
     Dates: start: 20040630, end: 20040630
  10. NITROGLYCERIN [Concomitant]
     Dosage: UNK
     Dates: start: 20040630, end: 20040630
  11. DOPAMINE [Concomitant]
     Dosage: UNK
     Route: 042
     Dates: start: 20040630, end: 20040630

REACTIONS (13)
  - STRESS [None]
  - FEAR [None]
  - EMOTIONAL DISTRESS [None]
  - INJURY [None]
  - MULTI-ORGAN FAILURE [None]
  - RENAL IMPAIRMENT [None]
  - ANXIETY [None]
  - ANHEDONIA [None]
  - PAIN [None]
  - RENAL FAILURE [None]
  - DEATH [None]
  - UNEVALUABLE EVENT [None]
  - RENAL INJURY [None]
